FAERS Safety Report 4678555-1 (Version None)
Quarter: 2005Q2

REPORT INFORMATION
  Report Type: 
  Country: None (occurrence: None)
  Receive Date: 20050527
  Receipt Date: 20050518
  Transmission Date: 20051028
  Serious: Yes (Death)
  Sender: FDA-Public Use
  Company Number: IT-2005-008145

PATIENT
  Age: 66 Year
  Sex: 0

DRUGS (1)
  1. ULTRAVIST (IOPROMIDE) INFUSION [Suspect]
     Indication: COMPUTERISED TOMOGRAM
     Dosage: INTRAVENOUS
     Route: 042
     Dates: start: 20050517, end: 20050517

REACTIONS (1)
  - PROCEDURAL COMPLICATION [None]
